FAERS Safety Report 18913029 (Version 1)
Quarter: 2021Q1

REPORT INFORMATION
  Report Type: Spontaneous
  Country: CA (occurrence: CA)
  Receive Date: 20210218
  Receipt Date: 20210218
  Transmission Date: 20210420
  Serious: Yes (Other)
  Sender: FDA-Public Use
  Company Number: CA-BAYER-2021-062191

PATIENT
  Age: 24 Year
  Sex: Female

DRUGS (14)
  1. LEFLUNOMIDE. [Suspect]
     Active Substance: LEFLUNOMIDE
  2. MEDROXYPROGESTERON [Suspect]
     Active Substance: MEDROXYPROGESTERONE ACETATE
  3. SULFASALAZINE. [Suspect]
     Active Substance: SULFASALAZINE
  4. LEFLUNOMIDE. [Suspect]
     Active Substance: LEFLUNOMIDE
  5. ALEVE [Suspect]
     Active Substance: NAPROXEN SODIUM
  6. HYDROXYCHLOROQUINE SULFATE. [Suspect]
     Active Substance: HYDROXYCHLOROQUINE SULFATE
  7. INFLIXIMAB [Suspect]
     Active Substance: INFLIXIMAB
  8. OXYCODONE [Suspect]
     Active Substance: OXYCODONE
  9. FOLIC ACID. [Suspect]
     Active Substance: FOLIC ACID
  10. METHOTREXATE. [Suspect]
     Active Substance: METHOTREXATE
  11. RITUXIMAB. [Suspect]
     Active Substance: RITUXIMAB
  12. ERELZI [Suspect]
     Active Substance: ETANERCEPT-SZZS
  13. PREDNISONE. [Suspect]
     Active Substance: PREDNISONE
  14. INFLIXIMAB [Suspect]
     Active Substance: INFLIXIMAB

REACTIONS (4)
  - Renal mass [None]
  - Vomiting [None]
  - Clear cell renal cell carcinoma [None]
  - Diarrhoea [None]
